FAERS Safety Report 10771787 (Version 2)
Quarter: 2015Q1

REPORT INFORMATION
  Report Type: Spontaneous
  Country: KR (occurrence: KR)
  Receive Date: 20150206
  Receipt Date: 20150209
  Transmission Date: 20150721
  Serious: Yes (Death, Other)
  Sender: FDA-Public Use
  Company Number: PHHY2015KR014369

PATIENT
  Age: 23 Year
  Sex: Male

DRUGS (5)
  1. CICLOSPORIN [Suspect]
     Active Substance: CYCLOSPORINE
     Indication: ACUTE GRAFT VERSUS HOST DISEASE
     Route: 065
  2. CICLOSPORIN [Suspect]
     Active Substance: CYCLOSPORINE
     Indication: CYTOMEGALOVIRUS INFECTION
  3. GANCICLOVIR. [Suspect]
     Active Substance: GANCICLOVIR
     Indication: CYTOMEGALOVIRUS INFECTION
  4. TACROLIMUS. [Suspect]
     Active Substance: TACROLIMUS
     Indication: PROPHYLAXIS AGAINST GRAFT VERSUS HOST DISEASE
     Route: 065
  5. GANCICLOVIR. [Suspect]
     Active Substance: GANCICLOVIR
     Indication: ACUTE GRAFT VERSUS HOST DISEASE
     Route: 065

REACTIONS (5)
  - Respiratory failure [Fatal]
  - Cytomegalovirus infection [Unknown]
  - Hepatic failure [Unknown]
  - Acute graft versus host disease [Unknown]
  - Graft versus host disease [Unknown]
